FAERS Safety Report 23033931 (Version 6)
Quarter: 2023Q4

REPORT INFORMATION
  Report Type: Spontaneous
  Country: US (occurrence: US)
  Receive Date: 20231005
  Receipt Date: 20231027
  Transmission Date: 20240109
  Serious: Yes (Other)
  Sender: FDA-Public Use
  Company Number: US-PFIZER INC-202300311909

PATIENT
  Age: 67 Year
  Sex: Female
  Weight: 52.16 kg

DRUGS (2)
  1. NICOTROL [Suspect]
     Active Substance: NICOTINE
     Indication: Smoking cessation therapy
     Dosage: UNK
  2. NICOTROL [Suspect]
     Active Substance: NICOTINE
     Indication: Smoking cessation therapy
     Dosage: UNK [1 BOX A WEEK VIA NASAL SPRAY ]
     Dates: end: 202309

REACTIONS (6)
  - Choking [Unknown]
  - Wrong product administered [Unknown]
  - Burning sensation [Unknown]
  - Dyspnoea [Unknown]
  - Retching [Unknown]
  - Thermal burn [Unknown]
